FAERS Safety Report 5212174-3 (Version None)
Quarter: 2007Q1

REPORT INFORMATION
  Report Type: 
  Country: None (occurrence: None)
  Receive Date: 20070118
  Receipt Date: 20070103
  Transmission Date: 20070707
  Serious: Yes (Death)
  Sender: FDA-Public Use
  Company Number: US-JNJFOC-20061004004

PATIENT
  Sex: Female
  Weight: 47.17 kg

DRUGS (11)
  1. FENTANYL TRANSDERMAL SYSTEM [Suspect]
     Indication: INTENTIONAL DRUG MISUSE
     Route: 065
  2. METHADONE HCL [Suspect]
     Indication: DRUG USE FOR UNKNOWN INDICATION
     Route: 065
  3. PROZAC [Concomitant]
     Route: 065
  4. ADDERALL 10 [Concomitant]
     Route: 065
  5. RISPERDAL [Concomitant]
     Route: 065
  6. DESYREL [Concomitant]
     Route: 065
  7. CELEBREX [Concomitant]
     Route: 065
  8. NEURONTIN [Concomitant]
     Route: 065
  9. VICODIN [Concomitant]
     Route: 065
  10. ORTHO TRI-CYCLEN [Concomitant]
     Route: 065
  11. NASONEX [Concomitant]
     Route: 065

REACTIONS (2)
  - DRUG TOXICITY [None]
  - INJURY [None]
